FAERS Safety Report 22345012 (Version 1)
Quarter: 2023Q2

REPORT INFORMATION
  Report Type: Spontaneous
  Country: BE (occurrence: BE)
  Receive Date: 20230519
  Receipt Date: 20230519
  Transmission Date: 20230722
  Serious: Yes (Disabling)
  Sender: FDA-Public Use
  Company Number: None

PATIENT
  Age: 27 Year
  Sex: Female
  Weight: 75 kg

DRUGS (2)
  1. KYLEENA [Suspect]
     Active Substance: LEVONORGESTREL
     Indication: Contraception
     Dosage: 17.5?G/DAY
     Route: 015
     Dates: start: 20230420
  2. KYLEENA [Suspect]
     Active Substance: LEVONORGESTREL
     Indication: Menstrual discomfort

REACTIONS (8)
  - Decreased appetite [Not Recovered/Not Resolved]
  - Asthenia [Not Recovered/Not Resolved]
  - Hyperhidrosis [Not Recovered/Not Resolved]
  - Abdominal pain lower [Not Recovered/Not Resolved]
  - Dizziness [Not Recovered/Not Resolved]
  - Abdominal pain [Not Recovered/Not Resolved]
  - Diarrhoea [Not Recovered/Not Resolved]
  - Abdominal pain lower [Not Recovered/Not Resolved]

NARRATIVE: CASE EVENT DATE: 20230420
